FAERS Safety Report 21578412 (Version 1)
Quarter: 2022Q4

REPORT INFORMATION
  Report Type: Report from Study
  Country: US (occurrence: US)
  Receive Date: 20221110
  Receipt Date: 20221110
  Transmission Date: 20230113
  Serious: No
  Sender: FDA-Public Use
  Company Number: US-ABBVIE-22K-163-4382385-00

PATIENT
  Age: 38 Year
  Sex: Female

DRUGS (3)
  1. HUMIRA [Suspect]
     Active Substance: ADALIMUMAB
     Indication: Hidradenitis
     Dosage: TWO PEN DAY ONE?FORM STRENGTH: 80 MILLIGRAM?ONE IN ONCE FREQUENCY
     Route: 058
     Dates: start: 20210917, end: 20210917
  2. HUMIRA [Suspect]
     Active Substance: ADALIMUMAB
     Dosage: DAY 15?FORM STRENGTH: 80 MILLIGRAM?ONE IN ONCE FREQUENCY
     Route: 058
     Dates: start: 20211001, end: 20211001
  3. PFIZER-BIONTECH COVID-19 VACCINE [Concomitant]
     Active Substance: TOZINAMERAN
     Indication: COVID-19 immunisation
     Dosage: ONE IN ONCE FREQUENCY
     Route: 030

REACTIONS (6)
  - Dysphonia [Not Recovered/Not Resolved]
  - Therapeutic response shortened [Unknown]
  - Hidradenitis [Unknown]
  - Hypersensitivity [Not Recovered/Not Resolved]
  - Upper respiratory tract infection [Not Recovered/Not Resolved]
  - Stress [Not Recovered/Not Resolved]

NARRATIVE: CASE EVENT DATE: 20220401
